FAERS Safety Report 9693318 (Version 1)
Quarter: 2013Q4

REPORT INFORMATION
  Report Type: Other
  Country: US (occurrence: US)
  Receive Date: 20131118
  Receipt Date: 20131118
  Transmission Date: 20140711
  Serious: Yes (Life-Threatening, Hospitalization)
  Sender: FDA-Public Use
  Company Number: US-PURDUE-USA-2013-0108611

PATIENT
  Age: 67 Year
  Sex: Male

DRUGS (7)
  1. TRAMADOL (SIMILAR TO NDA 21-745) [Suspect]
     Indication: ANALGESIC THERAPY
     Dosage: 100 MG, TID
     Route: 048
  2. RASAGILINE [Suspect]
     Indication: PRODUCT USED FOR UNKNOWN INDICATION
     Dosage: 1 MG, UNK
     Route: 048
  3. ZIPRASIDONE [Suspect]
     Indication: HALLUCINATION
     Route: 048
  4. AMANTADINE [Concomitant]
     Indication: PRODUCT USED FOR UNKNOWN INDICATION
  5. CARBIDOPA LEVODOPA [Concomitant]
     Dosage: 25/100 MG
  6. DEPAKOTE [Concomitant]
     Dosage: 1.25 G, DAILY
     Route: 048
  7. CLOZAPINE [Concomitant]
     Dosage: 25 MG, UNK
     Route: 048

REACTIONS (5)
  - Rhabdomyolysis [Recovered/Resolved]
  - Renal failure acute [Recovered/Resolved]
  - Labelled drug-drug interaction medication error [Recovered/Resolved]
  - Potentiating drug interaction [Recovered/Resolved]
  - Serotonin syndrome [Recovered/Resolved]
